FAERS Safety Report 6219781-X (Version None)
Quarter: 2009Q2

REPORT INFORMATION
  Report Type: 
  Country: None (occurrence: None)
  Receive Date: 20090609
  Receipt Date: 20090602
  Transmission Date: 20091009
  Serious: Yes (Disabling)
  Sender: FDA-Public Use
  Company Number: B0572112A

PATIENT
  Sex: Female
  Weight: 39 kg

DRUGS (8)
  1. VALTREX [Suspect]
     Indication: HERPES ZOSTER
     Dosage: 1000MG TWICE PER DAY
     Route: 048
     Dates: start: 20090421, end: 20090421
  2. FUROSEMIDE [Concomitant]
     Indication: DRUG USE FOR UNKNOWN INDICATION
     Dosage: 20MG PER DAY
     Route: 048
  3. LOXONIN [Concomitant]
     Dosage: 180MG PER DAY
     Route: 048
     Dates: start: 20090421, end: 20090422
  4. ALDACTONE [Concomitant]
     Dosage: 25MG PER DAY
     Route: 048
  5. REQUIP [Concomitant]
     Dosage: 3MG PER DAY
     Route: 048
  6. LANDSEN [Concomitant]
     Dosage: .5MG PER DAY
     Route: 048
  7. MENESIT [Concomitant]
     Dosage: 300MG PER DAY
     Route: 048
  8. DIBUCAINE [Concomitant]
     Indication: NERVE BLOCK
     Dates: start: 20090421

REACTIONS (5)
  - ANURIA [None]
  - BACK PAIN [None]
  - BLOOD CREATININE INCREASED [None]
  - BLOOD UREA INCREASED [None]
  - MUSCULOSKELETAL CHEST PAIN [None]
